FAERS Safety Report 12488736 (Version 4)
Quarter: 2017Q2

REPORT INFORMATION
  Report Type: Spontaneous
  Country: IT (occurrence: IT)
  Receive Date: 20160622
  Receipt Date: 20170623
  Transmission Date: 20170830
  Serious: Yes (Hospitalization)
  Sender: FDA-Public Use
  Company Number: IT-PFIZER INC-2016277442

PATIENT
  Age: 14 Year
  Sex: Female

DRUGS (2)
  1. DEPAKIN [Concomitant]
     Active Substance: VALPROATE SODIUM
     Dosage: 0.5 DF, 2X/DAY
     Dates: start: 201603, end: 201605
  2. ZARONTIN [Suspect]
     Active Substance: ETHOSUXIMIDE
     Indication: PETIT MAL EPILEPSY
     Dosage: 7.5 ML, DAILY
     Route: 048
     Dates: start: 201603, end: 20160620

REACTIONS (5)
  - Epilepsy [Unknown]
  - Head injury [Unknown]
  - Underdose [Unknown]
  - Fall [Unknown]
  - Product quality issue [Unknown]

NARRATIVE: CASE EVENT DATE: 201605
